FAERS Safety Report 9375267 (Version 1)
Quarter: 2013Q2

REPORT INFORMATION
  Report Type: Report from Study
  Country: US (occurrence: US)
  Receive Date: 20130628
  Receipt Date: 20130628
  Transmission Date: 20140414
  Serious: Yes (Hospitalization)
  Sender: FDA-Public Use
  Company Number: US-GLAXOSMITHKLINE-A1018111A

PATIENT
  Age: 66 Year
  Sex: Female

DRUGS (4)
  1. OFATUMUMAB [Suspect]
     Indication: B-CELL LYMPHOMA
     Route: 042
     Dates: start: 20130122
  2. BENDAMUSTINE [Suspect]
     Indication: B-CELL LYMPHOMA
     Dates: start: 201301
  3. CARBOPLATIN [Suspect]
     Indication: B-CELL LYMPHOMA
     Dates: start: 201301
  4. ETOPOSIDE [Suspect]
     Indication: B-CELL LYMPHOMA
     Dates: start: 201301

REACTIONS (1)
  - Febrile neutropenia [Unknown]
